FAERS Safety Report 8838316 (Version 1)
Quarter: 2012Q4

REPORT INFORMATION
  Report Type: 
  Country: US (occurrence: US)
  Receive Date: 20121012
  Receipt Date: 20121012
  Transmission Date: 20130627
  Serious: Yes (Disabling)
  Sender: FDA-Public Use
  Company Number: US-GLAXOSMITHKLINE-A0996474A

PATIENT
  Sex: Male

DRUGS (10)
  1. FONDAPARINUX [Suspect]
     Indication: ARTERIAL THROMBOSIS
     Dosage: 2.5MG Per day
     Route: 058
     Dates: start: 201201
  2. PREDNISONE [Concomitant]
  3. IVIG [Concomitant]
  4. ALBUTEROL NEBULIZER [Concomitant]
  5. NASAL SPRAY [Concomitant]
  6. UNSPECIFIED MEDICATION [Concomitant]
  7. CALCITROL [Concomitant]
  8. SERTRALINE [Concomitant]
  9. AMLODIPINE [Concomitant]
  10. SINGULAIR [Concomitant]

REACTIONS (1)
  - Phlebitis superficial [Not Recovered/Not Resolved]
